FAERS Safety Report 23847068 (Version 1)
Quarter: 2024Q2

REPORT INFORMATION
  Report Type: Spontaneous
  Country: US (occurrence: US)
  Receive Date: 20240513
  Receipt Date: 20240513
  Transmission Date: 20240716
  Serious: Yes (Hospitalization)
  Sender: FDA-Public Use
  Company Number: US-UCBSA-2024022948

PATIENT
  Sex: Male
  Weight: 74.83 kg

DRUGS (1)
  1. CIMZIA [Suspect]
     Active Substance: CERTOLIZUMAB PEGOL
     Indication: Psoriasis
     Dosage: 200 MILLIGRAM, EV 2 WEEKS(QOW)
     Route: 058
     Dates: start: 202112

REACTIONS (4)
  - Hospitalisation [Unknown]
  - Psoriasis [Unknown]
  - Adverse drug reaction [Unknown]
  - Drug ineffective [Unknown]
